FAERS Safety Report 21929820 (Version 1)
Quarter: 2023Q1

REPORT INFORMATION
  Report Type: Spontaneous
  Country: US (occurrence: US)
  Receive Date: 20230131
  Receipt Date: 20230131
  Transmission Date: 20230418
  Serious: No
  Sender: FDA-Public Use
  Company Number: US-BIOGEN-2022BI01148022

PATIENT
  Sex: Male

DRUGS (6)
  1. AVONEX [Suspect]
     Active Substance: INTERFERON BETA-1A
     Indication: Multiple sclerosis
     Dosage: INJECT 1 PREFILLED SYRINGE (30 MCG) INTRAMUSCULARLY ONCE WEEKLY
     Route: 050
  2. AVONEX [Suspect]
     Active Substance: INTERFERON BETA-1A
  3. AVONEX [Suspect]
     Active Substance: INTERFERON BETA-1A
  4. AVONEX [Suspect]
     Active Substance: INTERFERON BETA-1A
  5. ROSUVASTATIN CALCIUM [Concomitant]
     Active Substance: ROSUVASTATIN CALCIUM
     Route: 050
  6. ASPIRIN CHILD [Concomitant]
     Route: 050

REACTIONS (8)
  - Product dose omission in error [Unknown]
  - Intentional product misuse [Unknown]
  - Feeling hot [Unknown]
  - Tremor [Unknown]
  - Injection site haemorrhage [Unknown]
  - Hepatic enzyme increased [Unknown]
  - Gait disturbance [Unknown]
  - Hemiparesis [Unknown]
